FAERS Safety Report 14139990 (Version 3)
Quarter: 2017Q4

REPORT INFORMATION
  Report Type: Report from Study
  Country: MX (occurrence: MX)
  Receive Date: 20171030
  Receipt Date: 20171215
  Transmission Date: 20180321
  Serious: No
  Sender: FDA-Public Use
  Company Number: MX-ORION CORPORATION ORION PHARMA-ENTC2017-0486

PATIENT
  Sex: Female

DRUGS (8)
  1. ZAPEX [Concomitant]
     Route: 065
  2. STALEVO [Suspect]
     Active Substance: CARBIDOPA\ENTACAPONE\LEVODOPA
     Indication: PARKINSON^S DISEASE
     Dosage: STRENGTH: 50/12.5/200 MG
     Route: 048
     Dates: start: 2013, end: 201708
  3. LOSARTAN. [Concomitant]
     Active Substance: LOSARTAN
     Route: 065
  4. PARACETAMOL [Concomitant]
     Active Substance: ACETAMINOPHEN
     Route: 065
  5. MELATONIN [Concomitant]
     Active Substance: MELATONIN
     Route: 065
  6. CITALOPRAM [Concomitant]
     Active Substance: CITALOPRAM HYDROBROMIDE
     Route: 065
  7. STALEVO [Suspect]
     Active Substance: CARBIDOPA\ENTACAPONE\LEVODOPA
     Dosage: STRENGTH: 50/12.5/200 MG; ? TABLET AT 8:00, 11:00, 14:00, 17:00, 20:00, 23:00 HRS
     Route: 048
     Dates: start: 201708
  8. TRAMACET [Concomitant]
     Active Substance: ACETAMINOPHEN\TRAMADOL
     Route: 065

REACTIONS (2)
  - Speech disorder [Not Recovered/Not Resolved]
  - Intervertebral disc disorder [Not Recovered/Not Resolved]

NARRATIVE: CASE EVENT DATE: 2017
